FAERS Safety Report 4723592-1 (Version None)
Quarter: 2005Q3

REPORT INFORMATION
  Report Type: 
  Country: None (occurrence: None)
  Receive Date: 20050725
  Receipt Date: 20050719
  Transmission Date: 20060218
  Serious: Yes (Hospitalization)
  Sender: FDA-Public Use
  Company Number: US-MERCK-0507USA03173

PATIENT
  Sex: Male

DRUGS (2)
  1. INVANZ [Suspect]
     Route: 042
  2. ANCEF [Suspect]
     Route: 065

REACTIONS (2)
  - DISCOMFORT [None]
  - URTICARIA [None]
